FAERS Safety Report 7909389-X (Version None)
Quarter: 2011Q4

REPORT INFORMATION
  Report Type: 
  Country: None (occurrence: None)
  Receive Date: 20111111
  Receipt Date: 20111107
  Transmission Date: 20120403
  Serious: Yes (Hospitalization, Other)
  Sender: FDA-Public Use
  Company Number: HU-AMGEN-HUNCT2011003518

PATIENT
  Age: 53 Year
  Sex: Female

DRUGS (5)
  1. DENOSUMAB [Suspect]
     Indication: BREAST CANCER
     Dosage: UNK
     Dates: start: 20101229
  2. DOXORUBICIN HCL [Concomitant]
     Dosage: 99 MG, UNK
     Route: 042
     Dates: start: 20110105
  3. ANTIBIOTICS [Concomitant]
     Dosage: UNK
     Dates: start: 20101221, end: 20101226
  4. CYCLOPHOSPHAMIDE [Concomitant]
     Dosage: 987 MG, UNK
     Route: 042
     Dates: start: 20110105
  5. DEXRAZOXANE [Concomitant]
     Dosage: 822 MG, UNK
     Route: 042
     Dates: start: 20110105

REACTIONS (3)
  - PERIOSTITIS [None]
  - SEROMA [None]
  - LOCALISED INFECTION [None]
